FAERS Safety Report 19416796 (Version 1)
Quarter: 2021Q2

REPORT INFORMATION
  Report Type: Report from Study
  Country: GB (occurrence: GB)
  Receive Date: 20210615
  Receipt Date: 20210615
  Transmission Date: 20210717
  Serious: Yes (Other)
  Sender: FDA-Public Use
  Company Number: GB-GLAXOSMITHKLINE-GB2021125980

PATIENT
  Age: 67 Year
  Sex: Female

DRUGS (8)
  1. SINEMET CR [Concomitant]
     Active Substance: CARBIDOPA\LEVODOPA
     Indication: PARKINSON^S DISEASE
     Dosage: AT NIGHT
     Route: 065
  2. APO?GO [Suspect]
     Active Substance: APOMORPHINE
     Indication: PARKINSON^S DISEASE
     Dosage: 1.75 MG/HOUR, 1.50 MG/HOUR, 3.00 MG/HOUR
     Route: 058
     Dates: start: 20190225
  3. MADOPAR [Concomitant]
     Active Substance: BENSERAZIDE HYDROCHLORIDE\LEVODOPA
     Indication: PARKINSON^S DISEASE
     Dosage: UP TO 4 TIMES DAILY
     Route: 065
  4. SAFINAMIDE [Concomitant]
     Active Substance: SAFINAMIDE
     Indication: PARKINSON^S DISEASE
     Dosage: 50 MG, QD
     Route: 065
  5. ROPINIROLE HYDROCHLORIDE. [Suspect]
     Active Substance: ROPINIROLE HYDROCHLORIDE
     Indication: PARKINSON^S DISEASE
     Dosage: AT MORNING
     Route: 065
  6. APO?GO [Suspect]
     Active Substance: APOMORPHINE
     Indication: PARKINSON^S DISEASE
     Dosage: 4 MG (AS NECESSARY)
     Route: 058
     Dates: start: 20181129
  7. SINEMET [Concomitant]
     Active Substance: CARBIDOPA\LEVODOPA
     Indication: PARKINSON^S DISEASE
     Dosage: 125MG 0600?2100 3 HOURLY
     Route: 065
  8. THYROXINE [Concomitant]
     Active Substance: LEVOTHYROXINE
     Indication: PRODUCT USED FOR UNKNOWN INDICATION
     Dosage: 100MG / 125MG ALTERNATIVE DAYS
     Route: 065

REACTIONS (1)
  - Hallucinations, mixed [Unknown]
